FAERS Safety Report 23118142 (Version 2)
Quarter: 2023Q4

REPORT INFORMATION
  Report Type: Spontaneous
  Country: JP (occurrence: JP)
  Receive Date: 20231027
  Receipt Date: 20231220
  Transmission Date: 20240110
  Serious: Yes (Death, Hospitalization, Other)
  Sender: FDA-Public Use
  Company Number: JP-MSD-M2023-42288

PATIENT
  Age: 73 Year
  Sex: Male

DRUGS (2)
  1. KEYTRUDA [Suspect]
     Active Substance: PEMBROLIZUMAB
     Indication: Renal cell carcinoma stage IV
     Dosage: 200 MILLIGRAM, Q3W
     Route: 041
     Dates: start: 20230322, end: 20230620
  2. INLYTA [Concomitant]
     Active Substance: AXITINIB
     Indication: Renal cell carcinoma stage IV
     Dosage: UNK
     Route: 048
     Dates: end: 20230620

REACTIONS (11)
  - Blood pressure decreased [Fatal]
  - Altered state of consciousness [Unknown]
  - Dyspnoea [Unknown]
  - Hypothyroidism [Unknown]
  - Movement disorder [Unknown]
  - Nuchal rigidity [Unknown]
  - Decreased appetite [Unknown]
  - Asthenia [Unknown]
  - Diarrhoea [Not Recovered/Not Resolved]
  - Blood creatine phosphokinase increased [Unknown]
  - Dysphagia [Unknown]

NARRATIVE: CASE EVENT DATE: 20230401
